FAERS Safety Report 14946260 (Version 5)
Quarter: 2022Q1

REPORT INFORMATION
  Report Type: Spontaneous
  Country: US (occurrence: US)
  Receive Date: 20180529
  Receipt Date: 20220205
  Transmission Date: 20220423
  Serious: No
  Sender: FDA-Public Use
  Company Number: US-SA-1-1382736253

PATIENT
  Sex: Male

DRUGS (7)
  1. AUBAGIO [Suspect]
     Active Substance: TERIFLUNOMIDE
     Indication: Multiple sclerosis
     Dosage: 14 MG, QD
     Route: 048
     Dates: start: 2017
  2. DALFAMPRIDINE [Suspect]
     Active Substance: DALFAMPRIDINE
  3. AMPYRA [Concomitant]
     Active Substance: DALFAMPRIDINE
  4. AMPYRA [Concomitant]
     Active Substance: DALFAMPRIDINE
  5. SYNTHROID [Concomitant]
     Active Substance: LEVOTHYROXINE SODIUM
     Dosage: UNK
  6. SYNTHROID [Concomitant]
     Active Substance: LEVOTHYROXINE SODIUM
  7. ASPIRIN [Concomitant]
     Active Substance: ASPIRIN

REACTIONS (7)
  - Somnolence [Unknown]
  - Cold sweat [Unknown]
  - Chills [Unknown]
  - Dizziness [Unknown]
  - Hypertension [Unknown]
  - Adverse event [Unknown]
  - Unevaluable event [Unknown]
